FAERS Safety Report 9920366 (Version 2)
Quarter: 2014Q1

REPORT INFORMATION
  Report Type: Report from Study
  Country: BD (occurrence: BD)
  Receive Date: 20140224
  Receipt Date: 20140227
  Transmission Date: 20141002
  Serious: Yes (Death, Hospitalization, Other)
  Sender: FDA-Public Use
  Company Number: PHHY2014BD022036

PATIENT
  Age: 72 Year
  Sex: Female

DRUGS (1)
  1. ACLASTA [Suspect]
     Indication: OSTEOPOROSIS
     Dosage: ONCE YEARLY
     Route: 042
     Dates: start: 20130929

REACTIONS (12)
  - Pneumonia [Fatal]
  - Dyspnoea [Fatal]
  - White blood cell count increased [Fatal]
  - Arthritis [Fatal]
  - Mental impairment [Unknown]
  - Fear [Unknown]
  - Mental disorder [Unknown]
  - White blood cell count decreased [Unknown]
  - Rheumatic fever [Unknown]
  - Pain [Not Recovered/Not Resolved]
  - Nausea [Unknown]
  - Nasopharyngitis [Not Recovered/Not Resolved]
